FAERS Safety Report 12406494 (Version 4)
Quarter: 2016Q3

REPORT INFORMATION
  Report Type: Report from Study
  Country: AU (occurrence: AU)
  Receive Date: 20160526
  Receipt Date: 20160804
  Transmission Date: 20161109
  Serious: Yes (Hospitalization)
  Sender: FDA-Public Use
  Company Number: AU-ROCHE-1749075

PATIENT
  Age: 41 Year
  Sex: Male
  Weight: 75.9 kg

DRUGS (11)
  1. PANADOL (ACETAMINOPHEN) [Concomitant]
     Indication: NIGHT SWEATS
     Route: 048
     Dates: start: 201602
  2. OXYNORM [Concomitant]
     Active Substance: OXYCODONE HYDROCHLORIDE
     Indication: PROCEDURAL PAIN
     Route: 048
     Dates: start: 20160506
  3. ENOXAPARIN [Concomitant]
     Active Substance: ENOXAPARIN
     Indication: THROMBOSIS PROPHYLAXIS
     Route: 058
     Dates: start: 20160425, end: 20160427
  4. NUROFEN [Concomitant]
     Active Substance: IBUPROFEN
     Indication: NIGHT SWEATS
     Route: 048
     Dates: start: 201602
  5. COLOXYL WITH SENNA [Concomitant]
     Active Substance: DOCUSATE\SENNOSIDES
     Route: 048
     Dates: start: 20160427, end: 20160427
  6. LIGNOCAINE [Concomitant]
     Active Substance: LIDOCAINE HYDROCHLORIDE
     Route: 048
     Dates: start: 20160425, end: 20160501
  7. ATEZOLIZUMAB [Suspect]
     Active Substance: ATEZOLIZUMAB
     Indication: RENAL CELL CARCINOMA
     Dosage: MOST RECENT DOSE WAS TAKEN ON 14/APR/2016
     Route: 042
     Dates: start: 20160414
  8. BEVACIZUMAB [Suspect]
     Active Substance: BEVACIZUMAB
     Indication: RENAL CELL CARCINOMA
     Dosage: MOST RECENT DOSE WAS TAKEN ON 14/APR/2016 OF 1150 MG
     Route: 042
     Dates: start: 20160414
  9. COCAINE MOUTHWASH [Concomitant]
     Route: 048
     Dates: start: 20160425, end: 20160426
  10. LACTULOSE. [Concomitant]
     Active Substance: LACTULOSE
     Route: 048
     Dates: start: 20160429, end: 20160430
  11. PETER MACCALLUM MOUTHWASH (CARMOISINE/METHYL SALICYLATE/PEPPERMINT OIL [Concomitant]
     Route: 048
     Dates: start: 20160426

REACTIONS (1)
  - Systemic inflammatory response syndrome [Recovered/Resolved]

NARRATIVE: CASE EVENT DATE: 20160424
